FAERS Safety Report 7554381-0 (Version None)
Quarter: 2011Q2

REPORT INFORMATION
  Report Type: 
  Country: None (occurrence: None)
  Receive Date: 20110617
  Receipt Date: 20110607
  Transmission Date: 20111010
  Serious: Yes (Other)
  Sender: FDA-Public Use
  Company Number: US-ROCHE-734485

PATIENT
  Sex: Male
  Weight: 90.7 kg

DRUGS (3)
  1. ACCUTANE [Suspect]
     Indication: ACNE
     Route: 065
     Dates: start: 19880101
  2. ACCUTANE [Suspect]
     Route: 065
     Dates: start: 19890101
  3. ACCUTANE [Suspect]
     Route: 065
     Dates: end: 19980501

REACTIONS (4)
  - INTESTINAL OBSTRUCTION [None]
  - CROHN'S DISEASE [None]
  - GASTROINTESTINAL INJURY [None]
  - INFLAMMATORY BOWEL DISEASE [None]
